FAERS Safety Report 4307049-8 (Version None)
Quarter: 2004Q1

REPORT INFORMATION
  Report Type: 
  Country: None (occurrence: None)
  Receive Date: 20040226
  Receipt Date: 20040226
  Transmission Date: 20041129
  Serious: Yes (Hospitalization)
  Sender: FDA-Public Use
  Company Number: None

PATIENT
  Age: 73 Year
  Sex: Female
  Weight: 88.2 kg

DRUGS (6)
  1. EXISULIND [Suspect]
     Indication: NON-SMALL CELL LUNG CANCER
     Dosage: 125 MG BID / Q DAY
     Dates: start: 20040217
  2. VINORELBINE TARTRATE [Suspect]
     Indication: NON-SMALL CELL LUNG CANCER
     Dosage: 47 MG IV
     Route: 042
     Dates: start: 20040217
  3. NIFEDIPINE [Concomitant]
  4. ENALAPRIL MALEATE [Concomitant]
  5. EXTENDED RELEASE OXYCODONE [Concomitant]
  6. REGULAR RELEASE OXYCODONE [Concomitant]

REACTIONS (5)
  - ANOREXIA [None]
  - CONSTIPATION [None]
  - DEHYDRATION [None]
  - ILEUS [None]
  - MARKEDLY REDUCED DIETARY INTAKE [None]
